FAERS Safety Report 19430277 (Version 1)
Quarter: 2021Q2

REPORT INFORMATION
  Report Type: Spontaneous
  Country: DE (occurrence: DE)
  Receive Date: 20210617
  Receipt Date: 20210617
  Transmission Date: 20210717
  Serious: Yes (Hospitalization, Other)
  Sender: FDA-Public Use
  Company Number: DE-SA-2021SA198866

PATIENT
  Age: 66 Year
  Sex: Female

DRUGS (3)
  1. PARACETAMOL [Concomitant]
     Active Substance: ACETAMINOPHEN
     Indication: BACK PAIN
     Dosage: UNK UNK, PRN
  2. DUPILUMAB [Suspect]
     Active Substance: DUPILUMAB
     Indication: ASTHMA LATE ONSET
     Dosage: 300 MG, QOW
     Dates: start: 20201027, end: 202012
  3. PARACETAMOL [Concomitant]
     Active Substance: ACETAMINOPHEN
     Indication: ARTHRITIS

REACTIONS (11)
  - Cerebral infarction [Recovering/Resolving]
  - Quadriparesis [Recovering/Resolving]
  - Hemiparesis [Recovering/Resolving]
  - Aphasia [Recovering/Resolving]
  - Eosinophilia [Unknown]
  - Cerebrovascular accident [Recovering/Resolving]
  - Cutaneous vasculitis [Unknown]
  - Vascular occlusion [Unknown]
  - Depressed level of consciousness [Recovering/Resolving]
  - Atrial fibrillation [Recovering/Resolving]
  - Hemianopia [Recovering/Resolving]

NARRATIVE: CASE EVENT DATE: 202012
